FAERS Safety Report 19399988 (Version 2)
Quarter: 2021Q3

REPORT INFORMATION
  Report Type: Spontaneous
  Country: DE (occurrence: DE)
  Receive Date: 20210610
  Receipt Date: 20210705
  Transmission Date: 20211014
  Serious: Yes (Life-Threatening, Other)
  Sender: FDA-Public Use
  Company Number: DE-SA-2021SA192342

PATIENT
  Age: 24 Year
  Sex: Male
  Weight: 64 kg

DRUGS (5)
  1. CEREZYME [Suspect]
     Active Substance: IMIGLUCERASE
     Dosage: 100 ? 80 E / KG EVERY FORTNIGHT, QOW
     Route: 042
  2. CEREZYME [Suspect]
     Active Substance: IMIGLUCERASE
     Indication: GAUCHER^S DISEASE TYPE III
     Dosage: 3200 IU, QW
     Route: 042
     Dates: start: 1998
  3. CEREZYME [Suspect]
     Active Substance: IMIGLUCERASE
     Dosage: 50 IU/KG, QW (50 E / KG WEEKLY)
     Route: 042
  4. VENGLUSTAT. [Concomitant]
     Active Substance: VENGLUSTAT
     Indication: GAUCHER^S DISEASE
     Dosage: 15 MG, QD
  5. CEREZYME [Suspect]
     Active Substance: IMIGLUCERASE
     Indication: GAUCHER^S DISEASE
     Dosage: 60 IU/KG
     Route: 042

REACTIONS (4)
  - Hypolipidaemia [Not Recovered/Not Resolved]
  - Protein-losing gastroenteropathy [Not Recovered/Not Resolved]
  - Abdominal lymphadenopathy [Not Recovered/Not Resolved]
  - Drug ineffective [Unknown]
